FAERS Safety Report 10472525 (Version 1)
Quarter: 2014Q3

REPORT INFORMATION
  Report Type: Spontaneous
  Country: US (occurrence: None)
  Receive Date: 20140922
  Receipt Date: 20140922
  Transmission Date: 20150326
  Serious: Yes (Hospitalization)
  Sender: FDA-Public Use
  Company Number: US-AIKEM-000710

PATIENT
  Age: 57 Year
  Sex: Male

DRUGS (3)
  1. METFORMIN [Concomitant]
     Active Substance: METFORMIN HYDROCHLORIDE
  2. CEPHALEXIN. [Suspect]
     Active Substance: CEPHALEXIN
     Indication: ABSCESS NECK
  3. GLIPIZIDE. [Concomitant]
     Active Substance: GLIPIZIDE

REACTIONS (6)
  - Dyspnoea [None]
  - Pruritus generalised [None]
  - Cholelithiasis [None]
  - Rash maculo-papular [None]
  - Jaundice cholestatic [None]
  - Muscle spasms [None]
